FAERS Safety Report 9903760 (Version 1)
Quarter: 2014Q1

REPORT INFORMATION
  Report Type: Spontaneous
  Country: FR (occurrence: FR)
  Receive Date: 20140218
  Receipt Date: 20140218
  Transmission Date: 20141002
  Serious: Yes (Hospitalization)
  Sender: FDA-Public Use
  Company Number: FR-ROCHE-1347398

PATIENT
  Age: 68 Year
  Sex: Male

DRUGS (6)
  1. ZELBORAF [Suspect]
     Indication: METASTATIC MALIGNANT MELANOMA
     Route: 048
     Dates: start: 20130920
  2. ACEBUTOLOL [Concomitant]
     Route: 065
  3. RAMIPRIL [Concomitant]
     Route: 065
  4. OMEPRAZOLE [Concomitant]
     Route: 065
  5. CRESTOR [Concomitant]
     Route: 065
  6. CLOPIDOGREL [Concomitant]
     Route: 065

REACTIONS (1)
  - Pericarditis [Recovered/Resolved]
